FAERS Safety Report 17761831 (Version 3)
Quarter: 2020Q2

REPORT INFORMATION
  Report Type: Report from Study
  Country: CA (occurrence: CA)
  Receive Date: 20200508
  Receipt Date: 20200607
  Transmission Date: 20200714
  Serious: Yes (Other)
  Sender: FDA-Public Use
  Company Number: CA-B.I. PHARMACEUTICALS,INC./RIDGEFIELD-2020-BI-019755

PATIENT
  Sex: Female

DRUGS (2)
  1. OFEV [Suspect]
     Active Substance: NINTEDANIB
     Indication: IDIOPATHIC PULMONARY FIBROSIS
     Route: 048
     Dates: start: 20200409
  2. LOPERAMIDE [Suspect]
     Active Substance: LOPERAMIDE
     Indication: DIARRHOEA
     Route: 065

REACTIONS (11)
  - Pneumonia [Not Recovered/Not Resolved]
  - Fatigue [Not Recovered/Not Resolved]
  - Cough [Not Recovered/Not Resolved]
  - Haemorrhoids [Not Recovered/Not Resolved]
  - Productive cough [Not Recovered/Not Resolved]
  - Dysuria [Not Recovered/Not Resolved]
  - Infection [Unknown]
  - Constipation [Not Recovered/Not Resolved]
  - Idiopathic pulmonary fibrosis [Not Recovered/Not Resolved]
  - Diarrhoea [Recovered/Resolved]
  - Flatulence [Not Recovered/Not Resolved]
